FAERS Safety Report 11421842 (Version 8)
Quarter: 2017Q3

REPORT INFORMATION
  Report Type: Report from Study
  Country: CA (occurrence: CA)
  Receive Date: 20150827
  Receipt Date: 20170713
  Transmission Date: 20171127
  Serious: Yes (Hospitalization, Disabling, Other)
  Sender: FDA-Public Use
  Company Number: CA-ROCHE-1318626

PATIENT
  Age: 40 Year
  Sex: Female
  Weight: 125 kg

DRUGS (21)
  1. ACTEMRA [Suspect]
     Active Substance: TOCILIZUMAB
     Indication: RHEUMATOID ARTHRITIS
     Route: 042
     Dates: start: 20131113, end: 20140623
  2. IBUPROPHENUM [Concomitant]
     Active Substance: IBUPROFEN
  3. TRAMADOL. [Concomitant]
     Active Substance: TRAMADOL
     Route: 065
  4. ORENCIA [Concomitant]
     Active Substance: ABATACEPT
  5. ACTEMRA [Suspect]
     Active Substance: TOCILIZUMAB
     Route: 058
     Dates: start: 201511
  6. LEFLUNOMIDE. [Concomitant]
     Active Substance: LEFLUNOMIDE
  7. DICLOFENAC [Concomitant]
     Active Substance: DICLOFENAC
     Route: 061
  8. DRIXORAL SPRAY (CANADA) [Concomitant]
  9. HUMIRA [Concomitant]
     Active Substance: ADALIMUMAB
  10. PREDNISONE. [Concomitant]
     Active Substance: PREDNISONE
     Route: 065
  11. ACTEMRA [Suspect]
     Active Substance: TOCILIZUMAB
     Route: 042
     Dates: start: 20140203, end: 20140623
  12. DICLOFENAC SR [Concomitant]
     Route: 065
  13. LEFLUNOMIDE. [Concomitant]
     Active Substance: LEFLUNOMIDE
  14. ENBREL [Concomitant]
     Active Substance: ETANERCEPT
  15. ORENCIA [Concomitant]
     Active Substance: ABATACEPT
  16. PRISTIQ EXTENDED-RELEASE [Concomitant]
     Active Substance: DESVENLAFAXINE SUCCINATE
     Indication: DEPRESSION
  17. HUMIRA [Concomitant]
     Active Substance: ADALIMUMAB
  18. ENBREL [Concomitant]
     Active Substance: ETANERCEPT
  19. ACTEMRA [Suspect]
     Active Substance: TOCILIZUMAB
     Indication: RHEUMATOID ARTHRITIS
     Route: 058
     Dates: start: 20150625
  20. METHOTREXATE. [Concomitant]
     Active Substance: METHOTREXATE
     Route: 065
  21. REACTINE (CANADA) [Concomitant]
     Active Substance: CETIRIZINE HYDROCHLORIDE

REACTIONS (33)
  - Arthralgia [Not Recovered/Not Resolved]
  - Drug ineffective [Unknown]
  - Fall [Unknown]
  - Ankle fracture [Unknown]
  - Infection [Unknown]
  - Wound [Recovering/Resolving]
  - Peripheral swelling [Not Recovered/Not Resolved]
  - Rheumatoid arthritis [Not Recovered/Not Resolved]
  - Intestinal perforation [Not Recovered/Not Resolved]
  - Diverticulitis [Unknown]
  - Gait disturbance [Not Recovered/Not Resolved]
  - Blood pressure increased [Unknown]
  - C-reactive protein decreased [Recovering/Resolving]
  - Pruritus [Recovered/Resolved]
  - Sepsis [Unknown]
  - Eczema [Recovering/Resolving]
  - Bacteraemia [Unknown]
  - Varicella [Not Recovered/Not Resolved]
  - Dysstasia [Not Recovered/Not Resolved]
  - Inflammation [Unknown]
  - Diarrhoea [Unknown]
  - Abscess [Unknown]
  - Neuralgia [Unknown]
  - Pain [Unknown]
  - Skin irritation [Recovered/Resolved]
  - Joint injury [Not Recovered/Not Resolved]
  - Immunodeficiency [Unknown]
  - Swelling [Recovering/Resolving]
  - Pyrexia [Unknown]
  - White blood cell count decreased [Recovering/Resolving]
  - Weight increased [Unknown]
  - Headache [Recovering/Resolving]
  - Skin wrinkling [Not Recovered/Not Resolved]

NARRATIVE: CASE EVENT DATE: 20131113
